FAERS Safety Report 9504448 (Version 2)
Quarter: 2013Q4

REPORT INFORMATION
  Report Type: Spontaneous
  Country: US (occurrence: US)
  Receive Date: 20130906
  Receipt Date: 20131211
  Transmission Date: 20140711
  Serious: Yes (Hospitalization)
  Sender: FDA-Public Use
  Company Number: US-009507513-1309USA001183

PATIENT
  Age: 63 Year
  Sex: Female
  Weight: 61.22 kg

DRUGS (1)
  1. MIRALAX [Suspect]
     Indication: CONSTIPATION
     Dosage: 8-10 TIMES
     Route: 048
     Dates: start: 20130815, end: 20130816

REACTIONS (6)
  - Heart rate abnormal [Unknown]
  - Hyperhidrosis [Unknown]
  - Incorrect drug administration duration [Unknown]
  - Feeling abnormal [Recovered/Resolved]
  - Overdose [Unknown]
  - Inappropriate schedule of drug administration [Unknown]
